FAERS Safety Report 9036370 (Version 1)
Quarter: 2013Q1

REPORT INFORMATION
  Report Type: Spontaneous
  Country: US (occurrence: None)
  Receive Date: 20130117
  Receipt Date: 20130117
  Transmission Date: 20140127
  Serious: No
  Sender: FDA-Public Use
  Company Number: None

PATIENT
  Age: 71 Year
  Sex: Male
  Weight: 56.1 kg

DRUGS (1)
  1. HUMIRA 40MG/0.8ML [Suspect]
     Indication: RHEUMATOID ARTHRITIS
     Dosage: 40 MG , EVERY TWO WEEKS, SQ
     Route: 058
     Dates: start: 20121201, end: 20131215

REACTIONS (2)
  - Wrong technique in drug usage process [None]
  - Device malfunction [None]
